FAERS Safety Report 9645253 (Version 2)
Quarter: 2013Q4

REPORT INFORMATION
  Report Type: Spontaneous
  Country: US (occurrence: US)
  Receive Date: 20131025
  Receipt Date: 20131025
  Transmission Date: 20140711
  Serious: Yes (Hospitalization, Other)
  Sender: FDA-Public Use
  Company Number: US-JNJFOC-20120314694

PATIENT
  Age: 51 Year
  Sex: Male
  Weight: 92.08 kg

DRUGS (7)
  1. LEVAQUIN [Suspect]
     Indication: LUNG INFECTION
     Route: 048
     Dates: start: 201004
  2. TEQUIN [Suspect]
     Indication: PRODUCT USED FOR UNKNOWN INDICATION
     Route: 065
     Dates: start: 2002
  3. METHYLPREDNISOLONE [Suspect]
     Indication: PRODUCT USED FOR UNKNOWN INDICATION
     Route: 065
  4. FLUOCINOLONE [Suspect]
     Indication: URINARY TRACT INFECTION
     Route: 065
  5. DEPO MEDROL [Suspect]
     Indication: PAIN
     Route: 065
  6. ADVICOR [Concomitant]
     Indication: BLOOD CHOLESTEROL
  7. BAYER ASPIRIN [Concomitant]
     Indication: ISCHAEMIC HEART DISEASE PROPHYLAXIS
     Dates: start: 2009

REACTIONS (5)
  - Tendon rupture [Recovering/Resolving]
  - Neuropathy peripheral [Unknown]
  - Radiculopathy [Unknown]
  - Tendon disorder [Unknown]
  - Plantar fasciitis [Unknown]
